FAERS Safety Report 25022791 (Version 1)
Quarter: 2025Q1

REPORT INFORMATION
  Report Type: Spontaneous
  Country: US (occurrence: US)
  Receive Date: 20250228
  Receipt Date: 20250228
  Transmission Date: 20250409
  Serious: No
  Sender: MYLAN
  Company Number: US-MYLANLABS-2025M1013798

PATIENT
  Sex: Female
  Weight: 56.7 kg

DRUGS (1)
  1. NEURONTIN [Suspect]
     Active Substance: GABAPENTIN
     Indication: Neuralgia
     Dosage: 300 MILLIGRAM, TID (THREE TIMES DAILY)
     Dates: start: 20250128

REACTIONS (3)
  - Insomnia [Unknown]
  - Drug ineffective [Unknown]
  - Off label use [Unknown]
